FAERS Safety Report 7064540-1 (Version None)
Quarter: 2010Q4

REPORT INFORMATION
  Report Type: 
  Country: None (occurrence: None)
  Receive Date: 20101027
  Receipt Date: 20101013
  Transmission Date: 20110411
  Serious: Yes (Other)
  Sender: FDA-Public Use
  Company Number: US-AMGEN-QUU441587

PATIENT

DRUGS (23)
  1. EPOGEN [Suspect]
     Indication: RENAL FAILURE CHRONIC
     Dosage: 20000 IU, 3 TIMES/WK
     Route: 042
     Dates: start: 20070101, end: 20100928
  2. EPOGEN [Suspect]
     Indication: ANAEMIA
     Dates: start: 20100301
  3. EPOGEN [Suspect]
     Dates: start: 20100301
  4. EPOGEN [Suspect]
     Dates: start: 20100301
  5. EPOGEN [Suspect]
  6. EPOGEN [Suspect]
  7. PEG-INTRON [Suspect]
     Dosage: 180 A?G, QWK
     Route: 030
     Dates: start: 20100301
  8. RIBAVIRIN [Suspect]
     Dosage: 200 MG, BID
     Route: 048
     Dates: start: 20100301
  9. NEURONTIN [Concomitant]
     Dosage: 200 MG, QHS
     Route: 048
     Dates: start: 20100113
  10. AMLODIPINE [Concomitant]
     Dosage: 10 MG, QD
     Route: 048
     Dates: start: 20100113
  11. ZEMPLAR [Concomitant]
     Dosage: 17 A?G, 3 TIMES/WK
     Route: 042
  12. BENTYL [Concomitant]
     Dosage: 10 MG, QID
     Route: 048
  13. DIALYVITE 3000 [Concomitant]
     Route: 048
  14. LABETALOL HCL [Concomitant]
     Dosage: 200 MG, TID
     Route: 048
  15. PRILOSEC [Concomitant]
     Dosage: 40 MG, QD
     Route: 048
  16. RENVELA [Concomitant]
     Dosage: 800 MG, UNK
     Route: 048
  17. CIALIS [Concomitant]
     Dosage: 20 MG, PRN
  18. TYLENOL W/ CODEINE [Concomitant]
     Dosage: UNK UNK, PRN
  19. SENSIPAR [Concomitant]
     Dosage: 90 MG, QD
     Route: 048
  20. ATARAX [Concomitant]
     Dosage: 25 MG, PRN
  21. AMBIEN [Concomitant]
     Dosage: 10 MG, QHS
  22. MIRAPEX                            /01356401/ [Concomitant]
     Dosage: 0.25 MG, QHS
  23. DIOVAN [Concomitant]
     Dosage: 320 MG, UNK

REACTIONS (18)
  - ANAEMIA [None]
  - ARTHRITIS INFECTIVE [None]
  - BIOPSY KIDNEY ABNORMAL [None]
  - CARDIAC MURMUR [None]
  - DERMAL CYST [None]
  - DIALYSIS [None]
  - FOLLICULITIS [None]
  - HEPATITIS C [None]
  - HYPERLIPIDAEMIA [None]
  - HYPERPARATHYROIDISM SECONDARY [None]
  - INGUINAL HERNIA [None]
  - MENISCUS LESION [None]
  - PNEUMONIA [None]
  - RETROPERITONEAL HAEMORRHAGE [None]
  - STAPHYLOCOCCAL INFECTION [None]
  - THERAPEUTIC RESPONSE DECREASED [None]
  - WEIGHT DECREASED [None]
  - WHITE BLOOD CELL COUNT DECREASED [None]
